FAERS Safety Report 23109014 (Version 1)
Quarter: 2023Q4

REPORT INFORMATION
  Report Type: Spontaneous
  Country: US (occurrence: None)
  Receive Date: 20231025
  Receipt Date: 20231025
  Transmission Date: 20240110
  Serious: Yes (Life-Threatening, Disabling, Other)
  Sender: FDA-Public Use
  Company Number: None

PATIENT
  Age: 75 Year
  Sex: Female
  Weight: 64.8 kg

DRUGS (16)
  1. GADOLINIUM [Suspect]
     Active Substance: GADOLINIUM
     Indication: Pancreatic carcinoma
     Dosage: OTHER QUANTITY : 1 INJECTION(S);?OTHER FREQUENCY : DURING AN MRI;?
     Route: 042
  2. METOPROLOL [Concomitant]
     Active Substance: METOPROLOL
  3. telmisarten [Concomitant]
  4. HYDROCHLOROTHIAZIDE [Concomitant]
     Active Substance: HYDROCHLOROTHIAZIDE
  5. ARMOUR THYROID [Concomitant]
     Active Substance: THYROID, PORCINE
  6. bhrt hormone replacement [Concomitant]
  7. MAGNESIUM TAURATE [Concomitant]
  8. trace minerals bio [Concomitant]
  9. CYANOCOBALAMIN\DEXPANTHENOL\NIACINAMIDE\PYRIDOXINE HYDROCHLORIDE\RIBOF [Concomitant]
     Active Substance: CYANOCOBALAMIN\DEXPANTHENOL\NIACINAMIDE\PYRIDOXINE HYDROCHLORIDE\RIBOFLAVIN 5^-PHOSPHATE SODIUM\THIA
  10. TAURINE [Concomitant]
     Active Substance: TAURINE
  11. GLUTATHIONE [Concomitant]
     Active Substance: GLUTATHIONE
  12. NAC [Concomitant]
  13. collagens I [Concomitant]
  14. collagens II [Concomitant]
  15. collagens III [Concomitant]
  16. TMG [Concomitant]

REACTIONS (4)
  - Swelling face [None]
  - Throat tightness [None]
  - Blood pressure increased [None]
  - Heart rate irregular [None]

NARRATIVE: CASE EVENT DATE: 20231024
